FAERS Safety Report 25586496 (Version 2)
Quarter: 2025Q4

REPORT INFORMATION
  Report Type: Report from Study
  Country: BR (occurrence: BR)
  Receive Date: 20250721
  Receipt Date: 20251005
  Transmission Date: 20260117
  Serious: Yes (Hospitalization)
  Sender: BIOGEN
  Company Number: BR-BIOGEN-2025BI01317464

PATIENT
  Age: 53 Year
  Sex: Female
  Weight: 77 kg

DRUGS (3)
  1. TYSABRI [Suspect]
     Active Substance: NATALIZUMAB
     Indication: Multiple sclerosis
     Route: 050
     Dates: start: 202206
  2. TYSABRI [Suspect]
     Active Substance: NATALIZUMAB
     Route: 050
     Dates: start: 2022
  3. VITAMIN D [Concomitant]
     Active Substance: VITAMIN D NOS
     Indication: Musculoskeletal disorder prophylaxis
     Route: 050
     Dates: start: 2024

REACTIONS (10)
  - Exposure to communicable disease [Unknown]
  - Asthenia [Unknown]
  - Gait inability [Recovered/Resolved]
  - Ligament sprain [Recovered/Resolved]
  - Hypersensitivity [Unknown]
  - Vomiting [Recovered/Resolved]
  - Pyrexia [Recovered/Resolved]
  - Therapeutic response shortened [Unknown]
  - Immunosuppression [Unknown]
  - Urinary incontinence [Unknown]

NARRATIVE: CASE EVENT DATE: 20250101
